FAERS Safety Report 18721438 (Version 1)
Quarter: 2021Q1

REPORT INFORMATION
  Report Type: Spontaneous
  Country: FR (occurrence: FR)
  Receive Date: 20210110
  Receipt Date: 20210110
  Transmission Date: 20210419
  Serious: Yes (Death, Other)
  Sender: FDA-Public Use
  Company Number: FR-JNJFOC-20210110373

PATIENT
  Age: 14 Year
  Sex: Male

DRUGS (1)
  1. TRAMADOL HYDROCHLORIDE. [Suspect]
     Active Substance: TRAMADOL HYDROCHLORIDE
     Indication: PRODUCT USED FOR UNKNOWN INDICATION
     Dosage: 2 GRAM
     Route: 048
     Dates: start: 202011, end: 202011

REACTIONS (5)
  - Cardiomegaly [Fatal]
  - Overdose [Fatal]
  - Brain oedema [Fatal]
  - Pulmonary oedema [Fatal]
  - Drug abuse [Fatal]

NARRATIVE: CASE EVENT DATE: 202011
